FAERS Safety Report 6620271-0 (Version None)
Quarter: 2010Q1

REPORT INFORMATION
  Report Type: 
  Country: None (occurrence: None)
  Receive Date: 20100309
  Receipt Date: 20100205
  Transmission Date: 20100710
  Serious: Yes (Other)
  Sender: FDA-Public Use
  Company Number: US-SP-2010-01003

PATIENT
  Sex: Male

DRUGS (3)
  1. THERACYS [Suspect]
     Indication: BLADDER CANCER
     Route: 043
     Dates: start: 20100121, end: 20100121
  2. ASPIRIN [Concomitant]
  3. MULTI VIT [Concomitant]

REACTIONS (6)
  - CHEST X-RAY ABNORMAL [None]
  - CHILLS [None]
  - COLD SWEAT [None]
  - HEADACHE [None]
  - MALAISE [None]
  - PYREXIA [None]
